FAERS Safety Report 6710473-7 (Version None)
Quarter: 2010Q2

REPORT INFORMATION
  Report Type: 
  Country: None (occurrence: None)
  Receive Date: 20100430
  Receipt Date: 20100426
  Transmission Date: 20101027
  Serious: Yes (Hospitalization)
  Sender: FDA-Public Use
  Company Number: 2010EU001623

PATIENT
  Age: 59 Year
  Sex: Male

DRUGS (1)
  1. PROTOPIC [Suspect]
     Indication: BALANITIS
     Dosage: %, /D, TOPICAL
     Route: 061
     Dates: start: 20090101, end: 20090701

REACTIONS (5)
  - METASTASES TO LUNG [None]
  - METASTASES TO LYMPH NODES [None]
  - PAPILLOMA VIRAL INFECTION [None]
  - PENILE MALIGNANT NEOPLASM [None]
  - PENIS CARCINOMA METASTATIC [None]
